FAERS Safety Report 14417343 (Version 1)
Quarter: 2018Q1

REPORT INFORMATION
  Report Type: Spontaneous
  Country: US (occurrence: US)
  Receive Date: 20180122
  Receipt Date: 20180122
  Transmission Date: 20180509
  Serious: No
  Sender: FDA-Public Use
  Company Number: US-ALLERGAN-1734504US

PATIENT
  Sex: Female

DRUGS (4)
  1. KETOROLAC [Concomitant]
     Active Substance: KETOROLAC\KETOROLAC TROMETHAMINE
     Indication: SUPPORTIVE CARE
     Route: 047
  2. PREDNISOLONE ACETATE, 1.0% [Suspect]
     Active Substance: PREDNISOLONE ACETATE
     Indication: POSTOPERATIVE CARE
     Dosage: 1 GTT, TID
     Route: 047
     Dates: start: 20170720, end: 20170806
  3. OFLOXACIN. [Concomitant]
     Active Substance: OFLOXACIN
  4. PREDNISOLONE ACETATE, 1.0% [Suspect]
     Active Substance: PREDNISOLONE ACETATE
     Dosage: 1 GTT, TID
     Route: 047
     Dates: start: 20170807

REACTIONS (5)
  - Off label use [Unknown]
  - Drug dose omission [Unknown]
  - Visual impairment [Unknown]
  - Cataract [Unknown]
  - Product quality issue [Unknown]

NARRATIVE: CASE EVENT DATE: 2017
